FAERS Safety Report 12369334 (Version 4)
Quarter: 2022Q2

REPORT INFORMATION
  Report Type: Report from Study
  Country: US (occurrence: US)
  Receive Date: 20160513
  Receipt Date: 20220614
  Transmission Date: 20220720
  Serious: Yes (Death, Hospitalization)
  Sender: FDA-Public Use
  Company Number: US-009507513-1605USA003111

PATIENT
  Age: 56 Year
  Sex: Male
  Weight: 88.1 kg

DRUGS (16)
  1. TEMODAR [Suspect]
     Active Substance: TEMOZOLOMIDE
     Indication: Glioblastoma
     Dosage: DAY 1-5 OF 28 DAY CYCLE
     Route: 048
     Dates: start: 20160225
  2. DEPATUXIZUMAB MAFODOTIN [Suspect]
     Active Substance: DEPATUXIZUMAB MAFODOTIN
     Indication: Glioblastoma
     Dosage: D1 OF WEEKS 1, 3 AND 5 OF 28D CYCLE (178 MG)
     Route: 042
     Dates: start: 20160225, end: 20160323
  3. CITALOPRAM HYDROBROMIDE [Concomitant]
     Active Substance: CITALOPRAM HYDROBROMIDE
     Indication: Depression
     Dosage: 20 MG, QD
     Route: 048
     Dates: start: 201601
  4. DEXAMETHASONE [Concomitant]
     Active Substance: DEXAMETHASONE
     Indication: Brain oedema
     Dosage: 4 MG, BID
     Route: 048
     Dates: start: 20160301
  5. ACETAMINOPHEN\HYDROCODONE BITARTRATE [Concomitant]
     Active Substance: ACETAMINOPHEN\HYDROCODONE BITARTRATE
     Indication: Migraine
     Dosage: 5-325 MG (AS REQUIRED)
     Route: 048
     Dates: start: 201601
  6. KEPPRA [Concomitant]
     Active Substance: LEVETIRACETAM
     Indication: Seizure
     Dosage: 500 MG, BID
     Route: 048
     Dates: start: 20160126
  7. HYDROCHLOROTHIAZIDE\LOSARTAN POTASSIUM [Concomitant]
     Active Substance: HYDROCHLOROTHIAZIDE\LOSARTAN POTASSIUM
     Indication: Hypertension
     Dosage: 100-25 MG, (1 IN 1 D)
     Route: 048
     Dates: start: 201601
  8. ONDANSETRON [Concomitant]
     Active Substance: ONDANSETRON
     Indication: Prophylaxis of nausea and vomiting
     Dosage: 8 MG, AS REQUIRED
     Route: 048
     Dates: start: 20160308
  9. PROCHLORPERAZINE MALEATE [Concomitant]
     Active Substance: PROCHLORPERAZINE MALEATE
     Indication: Prophylaxis of nausea and vomiting
     Dosage: 10 MG, AS REQUIRED
     Route: 048
     Dates: start: 20160126
  10. TEMAZEPAM [Concomitant]
     Active Substance: TEMAZEPAM
     Indication: Insomnia
     Dosage: 30 MG, 1 IN 1 D
     Route: 048
     Dates: start: 20160301
  11. FILGRASTIM [Concomitant]
     Active Substance: FILGRASTIM
     Indication: Neutropenia
     Dosage: 480 MCG, 1 IN 1 D
     Route: 030
     Dates: start: 20160330, end: 20160410
  12. DEXTROSE\SODIUM CHLORIDE [Concomitant]
     Active Substance: DEXTROSE\SODIUM CHLORIDE
     Indication: Product used for unknown indication
     Dosage: 1000 ML, 1 ONCE
     Route: 041
     Dates: start: 20160331, end: 20160331
  13. VITAMINS [Concomitant]
     Active Substance: VITAMINS
     Indication: Vitamin supplementation
     Dosage: 10 ML, 1 ONCE
     Route: 041
     Dates: start: 20160331, end: 20160331
  14. PREDNISOLONE ACETATE [Concomitant]
     Active Substance: PREDNISOLONE ACETATE
     Indication: Eye drop instillation
     Dosage: 1-2 DROPS (3 IN 1 D)
     Route: 047
     Dates: start: 20160224, end: 20160229
  15. PREDNISOLONE ACETATE [Concomitant]
     Active Substance: PREDNISOLONE ACETATE
     Dosage: 1-2 DROPS (3 IN 1 D)
     Route: 047
     Dates: start: 20160307, end: 20160313
  16. PREDNISOLONE ACETATE [Concomitant]
     Active Substance: PREDNISOLONE ACETATE
     Dosage: 1-2 DROPS (3 IN 1 D)
     Route: 047
     Dates: start: 20160321, end: 20160323

REACTIONS (3)
  - Febrile neutropenia [Unknown]
  - Malignant neoplasm progression [Fatal]
  - Pneumonia [Unknown]

NARRATIVE: CASE EVENT DATE: 20160401
